FAERS Safety Report 5146020-3 (Version None)
Quarter: 2006Q4

REPORT INFORMATION
  Report Type: 
  Country: None (occurrence: None)
  Receive Date: 20061108
  Receipt Date: 20060613
  Transmission Date: 20070319
  Serious: Yes (Other)
  Sender: FDA-Public Use
  Company Number: PHBS2006JP09087

PATIENT
  Age: 11 Year
  Sex: Female
  Weight: 27 kg

DRUGS (6)
  1. KLARICID [Suspect]
     Indication: BRONCHITIS
     Dosage: 400 MG/DAY
     Route: 048
     Dates: start: 20060612, end: 20060612
  2. TOFRANIL [Suspect]
     Indication: ENURESIS
     Dosage: 25 MG/D
     Route: 048
     Dates: start: 20050701, end: 20060507
  3. TOFRANIL [Suspect]
     Dosage: 30 MG, QHS
     Route: 048
     Dates: start: 20060508, end: 20060608
  4. FLAVERIC [Concomitant]
     Indication: BRONCHITIS
     Dosage: 60 MG/DAY
     Route: 048
     Dates: start: 20060612, end: 20060612
  5. MUCOSOLVAN [Concomitant]
     Indication: BRONCHITIS
     Dosage: 45 MG/DAY
     Route: 048
     Dates: start: 20060612, end: 20060612
  6. LYSOZYME HYDROCHLORIDE [Concomitant]
     Indication: BRONCHITIS
     Dosage: 180 MG/DAY
     Route: 048
     Dates: start: 20060612, end: 20060612

REACTIONS (5)
  - ABDOMINAL PAIN [None]
  - BRONCHITIS [None]
  - COUGH [None]
  - NAUSEA [None]
  - VOMITING [None]
